FAERS Safety Report 23564323 (Version 2)
Quarter: 2024Q1

REPORT INFORMATION
  Report Type: Spontaneous
  Country: PT (occurrence: PT)
  Receive Date: 20240226
  Receipt Date: 20240307
  Transmission Date: 20240410
  Serious: Yes (Hospitalization, Other)
  Sender: FDA-Public Use
  Company Number: PT-ASTELLAS-2023US030933

PATIENT
  Age: 58 Year
  Sex: Female

DRUGS (1)
  1. ENFORTUMAB VEDOTIN [Suspect]
     Active Substance: ENFORTUMAB VEDOTIN
     Indication: Transitional cell carcinoma
     Dosage: UNK UNK, CYCLIC (C1)
     Route: 065
     Dates: start: 20230911

REACTIONS (17)
  - Stevens-Johnson syndrome [Unknown]
  - Pneumonitis [Unknown]
  - Diabetic ketoacidosis [Unknown]
  - Febrile neutropenia [Unknown]
  - Diabetes mellitus [Unknown]
  - Dyspnoea [Unknown]
  - Hyperlactacidaemia [Unknown]
  - Pruritus [Unknown]
  - Hyperhidrosis [Unknown]
  - Vomiting [Unknown]
  - Nausea [Unknown]
  - Abdominal pain [Unknown]
  - Dysgeusia [Unknown]
  - Decreased appetite [Not Recovered/Not Resolved]
  - Neutropenia [Unknown]
  - Weight decreased [Unknown]
  - Insulin C-peptide increased [Unknown]

NARRATIVE: CASE EVENT DATE: 20230901
